FAERS Safety Report 19735192 (Version 2)
Quarter: 2021Q3

REPORT INFORMATION
  Report Type: Report from Study
  Country: None (occurrence: BR)
  Receive Date: 20210824
  Receipt Date: 20210928
  Transmission Date: 20211014
  Serious: Yes (Hospitalization, Disabling, Other)
  Sender: FDA-Public Use
  Company Number: BR-ABBVIE-21K-020-4045394-00

PATIENT
  Age: 65 Year
  Sex: Male
  Weight: 68 kg

DRUGS (2)
  1. HUMIRA [Suspect]
     Active Substance: ADALIMUMAB
     Route: 058
     Dates: start: 2015
  2. HUMIRA [Suspect]
     Active Substance: ADALIMUMAB
     Indication: RHEUMATOID ARTHRITIS
     Route: 058
     Dates: start: 20130101

REACTIONS (9)
  - Bone operation [Unknown]
  - Anaemia [Recovered/Resolved]
  - Accident [Unknown]
  - Fall [Unknown]
  - Lower limb fracture [Recovered/Resolved]
  - Feeding disorder [Recovered/Resolved]
  - Gait inability [Not Recovered/Not Resolved]
  - Femur fracture [Not Recovered/Not Resolved]
  - Medical device site joint infection [Not Recovered/Not Resolved]

NARRATIVE: CASE EVENT DATE: 202008
